FAERS Safety Report 4833297-4 (Version None)
Quarter: 2005Q4

REPORT INFORMATION
  Report Type: 
  Country: None (occurrence: None)
  Receive Date: 20051117
  Receipt Date: 20051108
  Transmission Date: 20060501
  Serious: Yes (Hospitalization)
  Sender: FDA-Public Use
  Company Number: 2005154994

PATIENT
  Sex: Male
  Weight: 113.3993 kg

DRUGS (5)
  1. LISTERINE (MENTHOL, METHYL SALICYLATE, EUCALYPTOL, THYMOL) [Suspect]
     Indication: DENTURE WEARER
     Dosage: ORAL, TOPICAL
     Route: 061
  2. EFFERDENT ANTI-BACTERIAL DENTURE CLEANSER (SODIUM PERBORATE MONOHYDRAT [Suspect]
     Indication: DENTURE WEARER
     Dosage: 1 TABLET 2 TO 3 TIMES DAILY, ORAL  TOPICAL
     Route: 048
     Dates: end: 20041201
  3. SODIUM BICARBONATE IN PLASTIC CONTAINER [Suspect]
     Indication: DENTURE WEARER
     Dosage: ORAL, TOPICAL
     Route: 048
  4. DIURETICS (DIURETICS) [Concomitant]
  5. RANITIDINE HYDROCHLORIDE [Concomitant]

REACTIONS (4)
  - ABDOMINAL PAIN [None]
  - BLOOD URINE PRESENT [None]
  - DEPRESSION [None]
  - HAEMORRHAGE [None]
